FAERS Safety Report 4803085-3 (Version None)
Quarter: 2005Q4

REPORT INFORMATION
  Report Type: 
  Country: None (occurrence: None)
  Receive Date: 20051013
  Receipt Date: 20051005
  Transmission Date: 20060501
  Serious: Yes (Disabling, Other)
  Sender: FDA-Public Use
  Company Number: 2005138596

PATIENT
  Age: 64 Year
  Sex: Female
  Weight: 90.7194 kg

DRUGS (4)
  1. NEURONTIN [Suspect]
     Indication: NEUROPATHY
     Dosage: 2100 MG (300 MG, 7 IN 1 D), ORAL
     Route: 048
     Dates: start: 20000101, end: 20050101
  2. PREVACID [Concomitant]
  3. KEFLEX [Concomitant]
  4. VITAMINS (VITAMINS) [Concomitant]

REACTIONS (2)
  - JUGULAR VEIN THROMBOSIS [None]
  - MOBILITY DECREASED [None]
